FAERS Safety Report 8340198-6 (Version None)
Quarter: 2012Q2

REPORT INFORMATION
  Report Type: 
  Country: None (occurrence: None)
  Receive Date: 20120507
  Receipt Date: 20120426
  Transmission Date: 20120825
  Serious: Yes (Hospitalization)
  Sender: FDA-Public Use
  Company Number: BR-ASTRAZENECA-2012SE27429

PATIENT
  Age: 60 Year
  Sex: Female
  Weight: 91 kg

DRUGS (11)
  1. METOPROLOL SUCCINATE [Suspect]
     Route: 048
     Dates: start: 20110601
  2. CRESTOR [Suspect]
     Indication: BLOOD CHOLESTEROL INCREASED
     Route: 048
  3. ASPIRIN [Concomitant]
     Route: 048
  4. ENALAPRIL MALEATE [Concomitant]
     Route: 048
  5. HYDROCHLOROTHIAZIDE [Concomitant]
     Route: 048
  6. METOPROLOL SUCCINATE [Suspect]
     Indication: HYPERTENSION
     Route: 048
     Dates: end: 20110601
  7. PANTOPRAZOLE [Concomitant]
     Route: 048
  8. RANITIDINE HCL [Concomitant]
     Route: 048
  9. ATACAND [Suspect]
     Indication: HYPERTENSION
     Dosage: 16 MG BID
     Route: 048
  10. RASILEZ [Concomitant]
     Route: 048
  11. APRESOLINE [Concomitant]
     Route: 048

REACTIONS (2)
  - INTENTIONAL DRUG MISUSE [None]
  - RENAL ARTERY OCCLUSION [None]
